FAERS Safety Report 16069689 (Version 3)
Quarter: 2019Q2

REPORT INFORMATION
  Report Type: Spontaneous
  Country: CA (occurrence: CA)
  Receive Date: 20190314
  Receipt Date: 20190610
  Transmission Date: 20190711
  Serious: Yes (Other)
  Sender: FDA-Public Use
  Company Number: CA-CELLTRION INC.-2019CA019335

PATIENT

DRUGS (2)
  1. PURINETHOL [Concomitant]
     Active Substance: MERCAPTOPURINE
     Dosage: 50 MG, 1X/DAY
     Route: 048
  2. INFLECTRA [Suspect]
     Active Substance: INFLIXIMAB-DYYB
     Indication: COLITIS ULCERATIVE
     Dosage: 5 MG/KG, EVERY 6 WEEKS
     Route: 065
     Dates: start: 201610, end: 2019

REACTIONS (6)
  - Frequent bowel movements [Unknown]
  - Asthenia [Unknown]
  - Drug ineffective [Unknown]
  - Off label use [Unknown]
  - Rectal haemorrhage [Unknown]
  - Defaecation urgency [Unknown]

NARRATIVE: CASE EVENT DATE: 201610
